FAERS Safety Report 5986397-X (Version None)
Quarter: 2008Q4

REPORT INFORMATION
  Report Type: 
  Country: None (occurrence: None)
  Receive Date: 20081203
  Receipt Date: 20081124
  Transmission Date: 20090506
  Serious: Yes (Other)
  Sender: FDA-Public Use
  Company Number: 2008100014

PATIENT
  Age: 35 Year
  Sex: Female

DRUGS (1)
  1. DALTEPARIN SODIUM [Suspect]
     Dosage: 25000 I.U. (125000 I.U., 2 IN 1 D), SUBCUTANEOUS
     Route: 058
     Dates: start: 19990101

REACTIONS (9)
  - BACK PAIN [None]
  - CHEST PAIN [None]
  - DRUG EXPOSURE DURING PREGNANCY [None]
  - DYSPNOEA [None]
  - LABOUR INDUCTION [None]
  - OSTEOPENIA [None]
  - OSTEOPOROSIS [None]
  - PULMONARY EMBOLISM [None]
  - SPINAL COMPRESSION FRACTURE [None]
